FAERS Safety Report 8831175 (Version 1)
Quarter: 2012Q4

REPORT INFORMATION
  Report Type: 
  Country: BR (occurrence: BR)
  Receive Date: 20121009
  Receipt Date: 20121009
  Transmission Date: 20130627
  Serious: Yes (Other)
  Sender: FDA-Public Use
  Company Number: PHHY2012BR087520

PATIENT
  Sex: Female

DRUGS (3)
  1. GALVUS [Suspect]
     Dosage: 50 mg, BID
  2. RASILEZ AMLO [Suspect]
     Indication: HYPERTENSION
     Dosage: 1 DF (300/10 mg), BID
  3. RASILEZ AMLO [Suspect]
     Dosage: 1 DF (300/10 mg), QD

REACTIONS (2)
  - Diabetes mellitus [Recovered/Resolved]
  - Blood pressure inadequately controlled [Recovered/Resolved]
